FAERS Safety Report 20954002 (Version 3)
Quarter: 2022Q4

REPORT INFORMATION
  Report Type: Report from Study
  Country: TN (occurrence: None)
  Receive Date: 20220614
  Receipt Date: 20221103
  Transmission Date: 20230112
  Serious: Yes (Hospitalization)
  Sender: FDA-Public Use
  Company Number: TN-Merck Healthcare KGaA-9328597

PATIENT
  Age: 35 Year
  Sex: Female

DRUGS (1)
  1. REBIF [Suspect]
     Active Substance: INTERFERON BETA-1A
     Indication: Multiple sclerosis
     Route: 058
     Dates: start: 20211224, end: 20220606

REACTIONS (2)
  - Cerebrovascular accident [Recovered/Resolved]
  - Multiple sclerosis relapse [Recovering/Resolving]
